FAERS Safety Report 9521886 (Version 1)
Quarter: 2013Q3

REPORT INFORMATION
  Report Type: Report from Study
  Country: US (occurrence: US)
  Receive Date: 20130913
  Receipt Date: 20130913
  Transmission Date: 20140515
  Serious: Yes (Other)
  Sender: FDA-Public Use
  Company Number: PHEH2013US019163

PATIENT
  Sex: Male

DRUGS (3)
  1. GILENYA [Suspect]
     Indication: MULTIPLE SCLEROSIS
     Dosage: 0.5 MG, QD
     Route: 048
  2. GABAPENTIN [Concomitant]
  3. ANTIHYPERTENSIVES [Concomitant]

REACTIONS (3)
  - Thinking abnormal [Unknown]
  - Paraesthesia [Unknown]
  - Hypertension [Unknown]
